FAERS Safety Report 21007311 (Version 1)
Quarter: 2022Q2

REPORT INFORMATION
  Report Type: Spontaneous
  Country: US (occurrence: US)
  Receive Date: 20220625
  Receipt Date: 20220625
  Transmission Date: 20220721
  Serious: No
  Sender: FDA-Public Use
  Company Number: US-TEVA-2022-US-2042844

PATIENT
  Sex: Female

DRUGS (1)
  1. DOXAZOSIN MESYLATE [Suspect]
     Active Substance: DOXAZOSIN MESYLATE
     Indication: Hypertension
     Dosage: 1 MILLIGRAM
     Route: 065
     Dates: end: 20220517

REACTIONS (2)
  - Pollakiuria [Not Recovered/Not Resolved]
  - Dehydration [Recovered/Resolved]
